FAERS Safety Report 25018273 (Version 2)
Quarter: 2025Q1

REPORT INFORMATION
  Report Type: Spontaneous
  Country: US (occurrence: US)
  Receive Date: 20250227
  Receipt Date: 20250310
  Transmission Date: 20250408
  Serious: Yes (Other)
  Sender: PFIZER
  Company Number: US-PFIZER INC-202500043004

PATIENT
  Age: 14 Year
  Sex: Female
  Weight: 31.75 kg

DRUGS (3)
  1. OXBRYTA [Suspect]
     Active Substance: VOXELOTOR
     Indication: Sickle cell anaemia
     Dosage: 500 MG TWICE A DAY
     Dates: start: 202310, end: 202401
  2. OXBRYTA [Suspect]
     Active Substance: VOXELOTOR
     Dosage: 500 MG TWICE A DAY
     Dates: start: 20240711, end: 202501
  3. HYDROXYUREA [Concomitant]
     Active Substance: HYDROXYUREA

REACTIONS (10)
  - Osteonecrosis [Unknown]
  - Dyspnoea [Unknown]
  - Abdominal pain [Unknown]
  - Bone density decreased [Unknown]
  - Drug hypersensitivity [Unknown]
  - Lymphadenopathy [Not Recovered/Not Resolved]
  - Urine analysis abnormal [Recovered/Resolved]
  - Abdominal pain upper [Not Recovered/Not Resolved]
  - Illness [Unknown]
  - Off label use [Unknown]

NARRATIVE: CASE EVENT DATE: 20240101
